FAERS Safety Report 13973342 (Version 1)
Quarter: 2017Q3

REPORT INFORMATION
  Report Type: Spontaneous
  Country: US (occurrence: None)
  Receive Date: 20170914
  Receipt Date: 20170914
  Transmission Date: 20171128
  Serious: Yes (Hospitalization, Other)
  Sender: FDA-Public Use
  Company Number: 2016BI00332185

PATIENT
  Age: 50 Year
  Sex: Female

DRUGS (11)
  1. ATIVAN [Concomitant]
     Active Substance: LORAZEPAM
  2. ASPIRIN. [Concomitant]
     Active Substance: ASPIRIN
  3. ZANAFLEX [Concomitant]
     Active Substance: TIZANIDINE HYDROCHLORIDE
  4. PROTONIX [Concomitant]
     Active Substance: PANTOPRAZOLE SODIUM
  5. ROBAXIN [Concomitant]
     Active Substance: METHOCARBAMOL
  6. RESTORIL [Concomitant]
     Active Substance: TEMAZEPAM
  7. TECFIDERA [Suspect]
     Active Substance: DIMETHYL FUMARATE
     Indication: MULTIPLE SCLEROSIS
     Route: 048
     Dates: start: 201605, end: 201609
  8. FE SUPPLEMENT [Concomitant]
     Active Substance: IRON
  9. KLONOPIN [Concomitant]
     Active Substance: CLONAZEPAM
  10. PEPCID [Concomitant]
     Active Substance: FAMOTIDINE
  11. KCL [Concomitant]
     Active Substance: POTASSIUM CHLORIDE

REACTIONS (16)
  - Acquired immunodeficiency syndrome [None]
  - Seizure [None]
  - Urinary tract infection [None]
  - Progressive multifocal leukoencephalopathy [None]
  - Speech disorder [None]
  - Cerebral ischaemia [None]
  - Hypothalamo-pituitary disorder [None]
  - Pneumonia [None]
  - Tremor [None]
  - Antiphospholipid syndrome [None]
  - Anxiety [None]
  - Abdominal discomfort [None]
  - Multiple sclerosis [None]
  - Suicidal ideation [None]
  - Major depression [None]
  - Cachexia [None]
